FAERS Safety Report 12305812 (Version 3)
Quarter: 2017Q1

REPORT INFORMATION
  Report Type: Report from Study
  Country: JP (occurrence: JP)
  Receive Date: 20160426
  Receipt Date: 20170201
  Transmission Date: 20170428
  Serious: Yes (Hospitalization, Other)
  Sender: FDA-Public Use
  Company Number: JP-INCYTE CORPORATION-2016IN001799

PATIENT
  Age: 74 Year
  Sex: Male

DRUGS (8)
  1. ABIRATERONE ACETATE W/PREDNISOLONE [Concomitant]
     Dosage: 10 MG, UNK
     Route: 065
     Dates: start: 20160323
  2. ABIRATERONE ACETATE W/PREDNISOLONE [Concomitant]
     Dosage: 5 MG, UNK
     Route: 065
     Dates: start: 20160307, end: 20160322
  3. ABIRATERONE ACETATE W/PREDNISOLONE [Concomitant]
     Indication: PRODUCT USED FOR UNKNOWN INDICATION
     Dosage: 10 MG, UNK
     Route: 065
     Dates: start: 20160217, end: 20160306
  4. JAKAVI [Suspect]
     Active Substance: RUXOLITINIB
     Indication: MYELOFIBROSIS
     Dosage: 10 MG, BID
     Route: 048
     Dates: start: 20160218, end: 20160330
  5. DEPAS [Concomitant]
     Active Substance: ETIZOLAM
     Indication: PRODUCT USED FOR UNKNOWN INDICATION
     Dosage: 0.5 MG, UNK
     Route: 065
  6. ALLELOCK [Concomitant]
     Active Substance: OLOPATADINE HYDROCHLORIDE
     Indication: PRODUCT USED FOR UNKNOWN INDICATION
     Dosage: 10 MG, UNK
     Route: 065
  7. CEFEPIME [Concomitant]
     Active Substance: CEFEPIME HYDROCHLORIDE
     Indication: PRODUCT USED FOR UNKNOWN INDICATION
     Dosage: 4 MG, UNK
     Route: 065
     Dates: start: 20160214, end: 20160222
  8. CEFEPIME [Concomitant]
     Active Substance: CEFEPIME HYDROCHLORIDE
     Dosage: 10 MG, UNK
     Route: 065
     Dates: start: 20160319, end: 20160331

REACTIONS (4)
  - Pseudomembranous colitis [Unknown]
  - Febrile neutropenia [Recovered/Resolved]
  - Platelet count decreased [Unknown]
  - Renal disorder [Unknown]

NARRATIVE: CASE EVENT DATE: 20160224
